FAERS Safety Report 9670024 (Version 1)
Quarter: 2013Q4

REPORT INFORMATION
  Report Type: Spontaneous
  Country: US (occurrence: US)
  Receive Date: 20131105
  Receipt Date: 20131105
  Transmission Date: 20140711
  Serious: No
  Sender: FDA-Public Use
  Company Number: US-TEVA-442463USA

PATIENT
  Age: 49 Year
  Sex: Female
  Weight: 59.02 kg

DRUGS (1)
  1. NUVIGIL [Suspect]
     Indication: HYPERSOMNIA
     Route: 048
     Dates: start: 201308

REACTIONS (1)
  - Stomatitis [Not Recovered/Not Resolved]
